FAERS Safety Report 16193738 (Version 1)
Quarter: 2019Q2

REPORT INFORMATION
  Report Type: Report from Study
  Country: IT (occurrence: IT)
  Receive Date: 20190413
  Receipt Date: 20190413
  Transmission Date: 20190711
  Serious: Yes (Hospitalization)
  Sender: FDA-Public Use
  Company Number: IT-TEVA-2019-IT-1036474

PATIENT
  Age: 15 Year
  Sex: Male

DRUGS (2)
  1. RESILIENT 83 MG COMPRESSE A RILASCIO PROLUNGATO [Concomitant]
     Active Substance: LITHIUM SULFATE
     Indication: AFFECTIVE DISORDER
     Route: 048
  2. OLANZAPINE. [Suspect]
     Active Substance: OLANZAPINE
     Indication: DRUG ABUSE
     Route: 048
     Dates: start: 20190228, end: 20190228

REACTIONS (4)
  - Asthenia [Recovering/Resolving]
  - Sinus bradycardia [Recovering/Resolving]
  - Sopor [Recovering/Resolving]
  - Hypotension [Recovering/Resolving]

NARRATIVE: CASE EVENT DATE: 20190228
